FAERS Safety Report 11144691 (Version 1)
Quarter: 2015Q2

REPORT INFORMATION
  Report Type: Spontaneous
  Country: US (occurrence: US)
  Receive Date: 20150528
  Receipt Date: 20150528
  Transmission Date: 20150821
  Serious: Yes (Life-Threatening, Other)
  Sender: FDA-Public Use
  Company Number: US-ROCHE-1579869

PATIENT
  Age: 70 Year
  Sex: Female

DRUGS (26)
  1. SULFAMETHOXAZOLE [Concomitant]
     Active Substance: SULFAMETHOXAZOLE
  2. TIGECYCLINE [Concomitant]
     Active Substance: TIGECYCLINE
  3. VEMURAFENIB [Suspect]
     Active Substance: VEMURAFENIB
     Indication: PRODUCT USED FOR UNKNOWN INDICATION
     Route: 065
  4. MEGESTROL [Concomitant]
     Active Substance: MEGESTROL
  5. METHYLPREDNISOLONE. [Concomitant]
     Active Substance: METHYLPREDNISOLONE
  6. DARBEPOETIN ALFA [Concomitant]
     Active Substance: DARBEPOETIN ALFA
  7. OMEPRAZOLE. [Concomitant]
     Active Substance: OMEPRAZOLE
  8. ENOXAPARIN [Concomitant]
     Active Substance: ENOXAPARIN
  9. IPRATROPIUM [Concomitant]
     Active Substance: IPRATROPIUM
  10. TRIMETHOPRIM. [Concomitant]
     Active Substance: TRIMETHOPRIM
  11. DIPHENHYDRAMINE [Concomitant]
     Active Substance: DIPHENHYDRAMINE
  12. SALBUTAMOL [Concomitant]
     Active Substance: ALBUTEROL
  13. CLONIDINE. [Concomitant]
     Active Substance: CLONIDINE
  14. LISINOPRIL. [Concomitant]
     Active Substance: LISINOPRIL
  15. SIMVASTATIN. [Concomitant]
     Active Substance: SIMVASTATIN
  16. TOBRAMYCIN. [Concomitant]
     Active Substance: TOBRAMYCIN
  17. ALLOPURINOL. [Concomitant]
     Active Substance: ALLOPURINOL
     Route: 065
  18. AMLODIPINE [Concomitant]
     Active Substance: AMLODIPINE BESYLATE
  19. COLCHICINE. [Concomitant]
     Active Substance: COLCHICINE
  20. INSULIN GLARGINE [Concomitant]
     Active Substance: INSULIN GLARGINE
  21. PIPERACILLIN/TAZOBACTAM [Suspect]
     Active Substance: PIPERACILLIN SODIUM\TAZOBACTAM SODIUM
     Indication: PRODUCT USED FOR UNKNOWN INDICATION
     Route: 065
  22. DAPTOMYCIN. [Concomitant]
     Active Substance: DAPTOMYCIN
  23. FAMOTIDINE. [Concomitant]
     Active Substance: FAMOTIDINE
  24. PREDNISOLONE. [Concomitant]
     Active Substance: PREDNISOLONE
  25. SODIUM BICARBONATE. [Concomitant]
     Active Substance: SODIUM BICARBONATE
  26. TIMOLOL [Concomitant]
     Active Substance: TIMOLOL

REACTIONS (30)
  - Respiratory failure [Unknown]
  - Chronic kidney disease [Unknown]
  - Aspartate aminotransferase increased [Unknown]
  - Acidosis [Unknown]
  - Pulmonary congestion [Unknown]
  - Atrial fibrillation [Unknown]
  - Ventricular tachycardia [Unknown]
  - Hyperbilirubinaemia [Unknown]
  - Neuropathy peripheral [Unknown]
  - Dermatitis exfoliative [Unknown]
  - Hyperglycaemia [Unknown]
  - Pleural effusion [Unknown]
  - Staphylococcal infection [Unknown]
  - Hyperuricaemia [Unknown]
  - Blood alkaline phosphatase increased [Unknown]
  - Urinary tract infection [Unknown]
  - Palmar-plantar erythrodysaesthesia syndrome [Unknown]
  - Pancreatitis [Unknown]
  - Gastric dilatation [Unknown]
  - Electrocardiogram abnormal [Unknown]
  - Alanine aminotransferase increased [Unknown]
  - Bacterial infection [Unknown]
  - Cerebral disorder [Unknown]
  - Medical device complication [Unknown]
  - Thrombocytopenia [Unknown]
  - Cardiac arrest [Unknown]
  - Failure to thrive [Unknown]
  - Atelectasis [Unknown]
  - Bronchitis [Unknown]
  - Candida infection [Unknown]
